FAERS Safety Report 6274686-3 (Version None)
Quarter: 2009Q3

REPORT INFORMATION
  Report Type: 
  Country: None (occurrence: None)
  Receive Date: 20090721
  Receipt Date: 20070924
  Transmission Date: 20100115
  Serious: Yes (Hospitalization)
  Sender: FDA-Public Use
  Company Number: US-ASTRAZENECA-2006UW23726

PATIENT
  Age: 19587 Day
  Sex: Female
  Weight: 107.5 kg

DRUGS (14)
  1. SEROQUEL [Suspect]
     Indication: DEPRESSION
     Route: 048
     Dates: start: 20050401, end: 20051101
  2. SEROQUEL [Suspect]
     Indication: ANXIETY
     Route: 048
     Dates: start: 20050401, end: 20051101
  3. SEROQUEL [Suspect]
     Route: 048
     Dates: start: 20050714
  4. SEROQUEL [Suspect]
     Route: 048
     Dates: start: 20050714
  5. LEXAPRO [Concomitant]
  6. LITHIUM [Concomitant]
  7. AMBIEN [Concomitant]
     Indication: INSOMNIA
     Dosage: 5 MG, 12.5 MG AT NIGHT
     Dates: start: 20031113
  8. PREMARIN [Concomitant]
     Indication: HOT FLUSH
     Dates: start: 20031113
  9. METFORMIN HCL [Concomitant]
     Dosage: 500-1000 MG
     Dates: start: 20051230
  10. EFFEXOR XR [Concomitant]
     Dates: start: 20051230
  11. PHENERGAN [Concomitant]
     Dosage: 25 MG
     Dates: start: 20031113
  12. PROZAC [Concomitant]
     Dosage: 20 MG-40 MG DAILY
     Route: 048
     Dates: start: 20040818
  13. MOTRIN [Concomitant]
     Dosage: 400 MG
     Route: 048
     Dates: start: 20031231
  14. LASIX [Concomitant]
     Route: 048
     Dates: start: 20031208

REACTIONS (10)
  - BLOOD CHOLESTEROL INCREASED [None]
  - CENTRAL OBESITY [None]
  - CHOLECYSTECTOMY [None]
  - DIABETES MELLITUS [None]
  - GASTROINTESTINAL DISORDER [None]
  - HEPATIC STEATOSIS [None]
  - IRRITABLE BOWEL SYNDROME [None]
  - LOW DENSITY LIPOPROTEIN INCREASED [None]
  - OBESITY [None]
  - ROAD TRAFFIC ACCIDENT [None]
